FAERS Safety Report 6136030-1 (Version None)
Quarter: 2009Q1

REPORT INFORMATION
  Report Type: 
  Country: None (occurrence: None)
  Receive Date: 20090325
  Receipt Date: 20090318
  Transmission Date: 20090719
  Serious: Yes (Other)
  Sender: FDA-Public Use
  Company Number: CHPA2009US06943

PATIENT
  Age: 15 Year
  Sex: Female
  Weight: 72.6 kg

DRUGS (2)
  1. THERAFLU NIGHTTIME SEVERE COLD + COUGH (PARACETAMOL, DIPHENYDRAMINE, P [Suspect]
     Indication: NASOPHARYNGITIS
     Dosage: 1 DF, ONCE/SINGLE, ORAL
     Route: 048
     Dates: start: 20090318, end: 20090318
  2. BENZONATATE [Suspect]
     Indication: COUGH
     Dosage: ORAL
     Route: 048
     Dates: start: 20090318, end: 20090318

REACTIONS (2)
  - HALLUCINATION [None]
  - SPEECH DISORDER [None]
